FAERS Safety Report 6120126-4 (Version None)
Quarter: 2009Q1

REPORT INFORMATION
  Report Type: 
  Country: None (occurrence: None)
  Receive Date: 20090316
  Receipt Date: 20090311
  Transmission Date: 20090719
  Serious: Yes (Hospitalization, Disabling)
  Sender: FDA-Public Use
  Company Number: US-MERCK-0812USA02294

PATIENT
  Age: 74 Year
  Sex: Male

DRUGS (9)
  1. VYTORIN [Suspect]
     Route: 048
     Dates: end: 20081024
  2. LANTUS [Suspect]
     Indication: TYPE 2 DIABETES MELLITUS
     Route: 058
     Dates: start: 20070101
  3. RAMIPRIL [Suspect]
     Route: 065
     Dates: end: 20081024
  4. METFORMIN [Concomitant]
     Route: 065
  5. PLAVIX [Concomitant]
     Route: 065
  6. FLURAZEPAM [Concomitant]
     Route: 065
  7. GABAPENTIN [Concomitant]
     Route: 065
  8. FLOMAX [Concomitant]
     Route: 065
  9. LIPITOR [Concomitant]
     Route: 065
     Dates: end: 20080801

REACTIONS (5)
  - GAIT DISTURBANCE [None]
  - LOSS OF CONTROL OF LEGS [None]
  - MUSCLE DISORDER [None]
  - MUSCULAR WEAKNESS [None]
  - MUSCULOSKELETAL DISORDER [None]
